FAERS Safety Report 4400613-7 (Version None)
Quarter: 2004Q3

REPORT INFORMATION
  Report Type: 
  Country: None (occurrence: None)
  Receive Date: 20040716
  Receipt Date: 20040716
  Transmission Date: 20050211
  Serious: Yes (Other)
  Sender: FDA-Public Use
  Company Number: None

PATIENT
  Age: 44 Year
  Sex: Female
  Weight: 76.2043 kg

DRUGS (1)
  1. TIAZAC [Suspect]
     Indication: HYPERTENSION
     Dosage: 180 MG ONE DAILY PO
     Route: 048
     Dates: start: 20040413, end: 20040504

REACTIONS (3)
  - HOT FLUSH [None]
  - MALAISE [None]
  - RASH ERYTHEMATOUS [None]
